FAERS Safety Report 8251708-1 (Version None)
Quarter: 2012Q1

REPORT INFORMATION
  Report Type: 
  Country: None (occurrence: None)
  Receive Date: 20120321
  Receipt Date: 20110222
  Transmission Date: 20120608
  Serious: Yes (Other)
  Sender: FDA-Public Use
  Company Number: 834552

PATIENT
  Age: 83 Year
  Sex: Male

DRUGS (4)
  1. (FLANAX /00256202/) [Concomitant]
  2. GENTAMICIN [Concomitant]
  3. MORPHINE [Concomitant]
  4. CIPRO [Suspect]
     Indication: PRODUCT USED FOR UNKNOWN INDICATION
     Dosage: 400 MG, INTRAVENOUS DRIP
     Route: 041
     Dates: start: 20110114, end: 20110114

REACTIONS (2)
  - PRURITUS [None]
  - ERYTHEMA [None]
